FAERS Safety Report 7762845-X (Version None)
Quarter: 2011Q3

REPORT INFORMATION
  Report Type: 
  Country: None (occurrence: None)
  Receive Date: 20110825
  Receipt Date: 20110705
  Transmission Date: 20111222
  Serious: No
  Sender: FDA-Public Use
  Company Number: 331266

PATIENT
  Age: 60 Year
  Sex: Male

DRUGS (3)
  1. NOVOLOG FLEXPEN (INSULIN ASPART) SOLUTION FOR INJECTION [Concomitant]
  2. LEVEMIR FLEX PEN (INSULIN DETEMIR) SOLUTION FOR INJECTION [Concomitant]
  3. VICTOZA [Suspect]
     Indication: TYPE 2 DIABETES MELLITUS
     Dosage: 1.2 U, QD, SUBCUTANEOUS
     Route: 058

REACTIONS (1)
  - WEIGHT DECREASED [None]
